FAERS Safety Report 9691604 (Version 3)
Quarter: 2013Q4

REPORT INFORMATION
  Report Type: Report from Study
  Country: JP (occurrence: JP)
  Receive Date: 20131115
  Receipt Date: 20131230
  Transmission Date: 20140711
  Serious: Yes (Life-Threatening, Disabling, Other)
  Sender: FDA-Public Use
  Company Number: JP-TAKEDA-2013TJP001211

PATIENT
  Age: 66 Year
  Sex: Male
  Weight: 73 kg

DRUGS (3)
  1. ALOGLIPTIN [Suspect]
     Indication: TYPE 2 DIABETES MELLITUS
     Dosage: 25 MG, QD
     Route: 048
     Dates: start: 20120904, end: 20121026
  2. METGLUCO [Concomitant]
     Indication: TYPE 2 DIABETES MELLITUS
     Dosage: 750 MG, 1 DAYS
     Route: 048
     Dates: end: 20120514
  3. METGLUCO [Concomitant]
     Dosage: 1500 MG, 1 DAYS
     Route: 048
     Dates: start: 20120515, end: 20121026

REACTIONS (1)
  - Cerebral infarction [Recovered/Resolved with Sequelae]
